FAERS Safety Report 8538166-4 (Version None)
Quarter: 2012Q3

REPORT INFORMATION
  Report Type: 
  Country: None (occurrence: None)
  Receive Date: 20120726
  Receipt Date: 20120720
  Transmission Date: 20120928
  Serious: No
  Sender: FDA-Public Use
  Company Number: US-009507513-1207USA008849

PATIENT

DRUGS (2)
  1. NEXPLANON [Suspect]
     Indication: MENSTRUATION IRREGULAR
     Dosage: UNK
     Dates: start: 20120430
  2. NEXPLANON [Suspect]
     Indication: ENDOMETRIOSIS

REACTIONS (5)
  - METRORRHAGIA [None]
  - CONSTIPATION [None]
  - DEPRESSION [None]
  - FEELING ABNORMAL [None]
  - IMPLANT SITE PRURITUS [None]
